FAERS Safety Report 11150621 (Version 2)
Quarter: 2016Q1

REPORT INFORMATION
  Report Type: Report from Study
  Country: US (occurrence: US)
  Receive Date: 20150601
  Receipt Date: 20160128
  Transmission Date: 20160525
  Serious: Yes (Hospitalization)
  Sender: FDA-Public Use
  Company Number: US-AMGEN-USASP2015052433

PATIENT
  Age: 1 Year
  Sex: Female

DRUGS (5)
  1. ENBREL [Suspect]
     Active Substance: ETANERCEPT
     Indication: JUVENILE IDIOPATHIC ARTHRITIS
     Dosage: 25 MG, UNK
     Route: 065
     Dates: start: 201506, end: 201507
  2. ENBREL [Suspect]
     Active Substance: ETANERCEPT
     Indication: HYPOGAMMAGLOBULINAEMIA
  3. ENBREL [Suspect]
     Active Substance: ETANERCEPT
     Indication: SIDEROBLASTIC ANAEMIA
  4. ENBREL [Suspect]
     Active Substance: ETANERCEPT
     Indication: PYREXIA
  5. ENBREL [Suspect]
     Active Substance: ETANERCEPT
     Indication: FAILURE TO THRIVE

REACTIONS (3)
  - Seizure [Not Recovered/Not Resolved]
  - Off label use [Not Recovered/Not Resolved]
  - Device breakage [Not Recovered/Not Resolved]

NARRATIVE: CASE EVENT DATE: 2015
